FAERS Safety Report 14076671 (Version 1)
Quarter: 2017Q4

REPORT INFORMATION
  Report Type: Spontaneous
  Country: US (occurrence: US)
  Receive Date: 20171011
  Receipt Date: 20171011
  Transmission Date: 20180321
  Serious: Yes (Death)
  Sender: FDA-Public Use
  Company Number: US-NORTHSTAR HEALTHCARE HOLDINGS-US-2017NSR000201

PATIENT
  Age: 37 Year
  Sex: Male

DRUGS (2)
  1. ESMOLOL [Suspect]
     Active Substance: ESMOLOL HYDROCHLORIDE
     Indication: THYROTOXIC CRISIS
     Dosage: UNK
  2. PROPRANOLOL HYDROCHLORIDE. [Suspect]
     Active Substance: PROPRANOLOL HYDROCHLORIDE
     Indication: THYROTOXIC CRISIS
     Dosage: 60 MG, EVERY 4 HOURS

REACTIONS (1)
  - Cardiac failure [Fatal]
